FAERS Safety Report 4360988-4 (Version None)
Quarter: 2004Q2

REPORT INFORMATION
  Report Type: 
  Country: None (occurrence: None)
  Receive Date: 20040514
  Receipt Date: 20040504
  Transmission Date: 20050107
  Serious: Yes (Other)
  Sender: FDA-Public Use
  Company Number: 2004212161GB

PATIENT
  Age: 71 Year
  Sex: Male

DRUGS (3)
  1. VERAPAMIL [Suspect]
     Indication: CLUSTER HEADACHE
     Dosage: SEE IMAGE
     Route: 048
     Dates: end: 20010901
  2. VERAPAMIL [Suspect]
     Indication: CLUSTER HEADACHE
     Dosage: SEE IMAGE
     Route: 048
     Dates: start: 20001201
  3. VERAPAMIL [Suspect]
     Indication: CLUSTER HEADACHE
     Dosage: SEE IMAGE
     Route: 048
     Dates: start: 20011119

REACTIONS (3)
  - CLUSTER HEADACHE [None]
  - DISEASE RECURRENCE [None]
  - LYMPHOMATOID PAPULOSIS [None]
